FAERS Safety Report 19646778 (Version 1)
Quarter: 2021Q3

REPORT INFORMATION
  Report Type: Spontaneous
  Country: US (occurrence: US)
  Receive Date: 20210802
  Receipt Date: 20210802
  Transmission Date: 20211014
  Serious: Yes (Other)
  Sender: FDA-Public Use
  Company Number: US-PFIZER INC-202100935644

PATIENT
  Age: 50 Year
  Sex: Male
  Weight: 92.99 kg

DRUGS (1)
  1. METHOTREXATE SODIUM. [Suspect]
     Active Substance: METHOTREXATE SODIUM
     Dosage: 25 MG, WEEKLY (10 2.5MG TABLETS ONCE A WEEK)

REACTIONS (1)
  - Autoimmune disorder [Unknown]
